FAERS Safety Report 15065863 (Version 1)
Quarter: 2018Q2

REPORT INFORMATION
  Report Type: Report from Study
  Country: ES (occurrence: ES)
  Receive Date: 20180626
  Receipt Date: 20180626
  Transmission Date: 20180711
  Serious: Yes (Other)
  Sender: FDA-Public Use
  Company Number: ES-ROCHE-2143994

PATIENT
  Age: 59 Year
  Sex: Male
  Weight: 85.3 kg

DRUGS (3)
  1. ATEZOLIZUMAB. [Suspect]
     Active Substance: ATEZOLIZUMAB
     Indication: RENAL CELL CARCINOMA
     Dosage: MOST RECENT DOSE 840 MG PRIOR TO THE AE ONSET RECEIVED ON 19/JUN/2018
     Route: 042
     Dates: start: 20171107
  2. RO 6874281 (FAP IL2V MAB) [Suspect]
     Active Substance: RO-6874281
     Indication: RENAL CELL CARCINOMA
     Dosage: MOST RECENT DOSE 5MG PRIOR TO THE AE ONSET RECEIVED ON 19/JUN/2018
     Route: 042
     Dates: start: 20171107
  3. BEVACIZUMAB. [Suspect]
     Active Substance: BEVACIZUMAB
     Indication: RENAL CELL CARCINOMA
     Dosage: MOST RECENT DOSE 10 MG/KG PRIOR TO THE AE ONSET RECEIVED ON 19/JUN/2018
     Route: 042
     Dates: start: 20171107

REACTIONS (1)
  - Atrial fibrillation [Recovering/Resolving]

NARRATIVE: CASE EVENT DATE: 20180620
